FAERS Safety Report 9400652 (Version 1)
Quarter: 2013Q3

REPORT INFORMATION
  Report Type: Spontaneous
  Country: FR (occurrence: None)
  Receive Date: 20130711
  Receipt Date: 20130711
  Transmission Date: 20140515
  Serious: Yes (Other)
  Sender: FDA-Public Use
  Company Number: SYM-2013-06015

PATIENT
  Age: 90 Year
  Sex: Female

DRUGS (7)
  1. MESTINON [Suspect]
     Route: 048
     Dates: start: 20130123, end: 20130614
  2. MECIR L.P. [Suspect]
     Route: 048
     Dates: start: 20130125, end: 20130610
  3. LASILIX [Suspect]
     Route: 048
  4. CALCIDOSE VITAMINE D3 [Suspect]
  5. TRANSIPEG [Suspect]
     Route: 048
  6. KETOCONAZOLE [Suspect]
     Dosage: 1 DOSAGE FORMS, 1 IN 3 D, CUTANEOUS
     Dates: start: 20130513
  7. DOLIPRANE [Suspect]

REACTIONS (1)
  - Hallucination [None]
